FAERS Safety Report 7277925-5 (Version None)
Quarter: 2011Q1

REPORT INFORMATION
  Report Type: 
  Country: None (occurrence: None)
  Receive Date: 20110207
  Receipt Date: 20110203
  Transmission Date: 20110831
  Serious: Yes (Hospitalization, Other)
  Sender: FDA-Public Use
  Company Number: PL-ROCHE-756198

PATIENT
  Sex: Male
  Weight: 63 kg

DRUGS (3)
  1. DOLARGAN [Suspect]
     Indication: INFUSION
     Route: 042
     Dates: start: 20101127, end: 20101206
  2. COPEGUS [Suspect]
     Indication: HEPATITIS C
     Route: 048
     Dates: start: 20100805, end: 20101124
  3. PEGASYS [Suspect]
     Indication: HEPATITIS C
     Route: 058
     Dates: start: 20100805, end: 20101118

REACTIONS (4)
  - ANAEMIA [None]
  - DERMATITIS ALLERGIC [None]
  - EXTRAVASATION [None]
  - DELIRIUM [None]
